FAERS Safety Report 9300458 (Version 1)
Quarter: 2013Q2

REPORT INFORMATION
  Report Type: Spontaneous
  Country: US (occurrence: US)
  Receive Date: 20130521
  Receipt Date: 20130521
  Transmission Date: 20140414
  Serious: Yes (Hospitalization)
  Sender: FDA-Public Use
  Company Number: US-ROXANE LABORATORIES, INC.-2013-RO-00800RO

PATIENT
  Age: 43 Year
  Sex: Female

DRUGS (2)
  1. LITHIUM CARBONATE [Suspect]
     Indication: BIPOLAR DISORDER
  2. VITAMIN D [Suspect]
     Dosage: 8000 U

REACTIONS (4)
  - Toxicity to various agents [Unknown]
  - Hypercalcaemia [Recovered/Resolved]
  - Mental status changes [Unknown]
  - Hallucination, visual [Unknown]
